FAERS Safety Report 7327180-2 (Version None)
Quarter: 2011Q1

REPORT INFORMATION
  Report Type: 
  Country: None (occurrence: None)
  Receive Date: 20110302
  Receipt Date: 20110223
  Transmission Date: 20110831
  Serious: Yes (Other)
  Sender: FDA-Public Use
  Company Number: US-GILEAD-2011-0035133

PATIENT
  Age: 55 Year
  Sex: Male

DRUGS (2)
  1. LETAIRIS [Suspect]
     Indication: PRODUCT USED FOR UNKNOWN INDICATION
     Route: 048
     Dates: start: 20101213, end: 20110104
  2. REMODULIN [Concomitant]

REACTIONS (3)
  - BLOOD ALKALINE PHOSPHATASE INCREASED [None]
  - CARDIAC FAILURE [None]
  - BLOOD BILIRUBIN INCREASED [None]
